FAERS Safety Report 6213116-4 (Version None)
Quarter: 2009Q2

REPORT INFORMATION
  Report Type: 
  Country: None (occurrence: None)
  Receive Date: 20090603
  Receipt Date: 20090526
  Transmission Date: 20091009
  Serious: Yes (Other)
  Sender: FDA-Public Use
  Company Number: B0575946A

PATIENT
  Sex: Male

DRUGS (5)
  1. PROPAFENONE HCL [Suspect]
     Indication: SUPRAVENTRICULAR TACHYCARDIA
     Dosage: 150MG TWICE PER DAY
     Route: 048
     Dates: start: 20090410, end: 20090420
  2. ACENOCOUMAROL [Concomitant]
  3. ESOMEPRAZOLE MAGNESIUM [Concomitant]
  4. FERROUS SULFATE TAB [Concomitant]
  5. ZOLPIDEM TARTRATE [Concomitant]

REACTIONS (2)
  - VENTRICULAR ARRHYTHMIA [None]
  - VENTRICULAR TACHYCARDIA [None]
